FAERS Safety Report 5120767-7 (Version None)
Quarter: 2006Q4

REPORT INFORMATION
  Report Type: 
  Country: None (occurrence: None)
  Receive Date: 20061003
  Receipt Date: 20061003
  Transmission Date: 20070319
  Serious: Yes (Other)
  Sender: FDA-Public Use
  Company Number: None

PATIENT
  Age: 67 Year
  Sex: Male
  Weight: 90.2658 kg

DRUGS (1)
  1. ISOVUE-128 [Suspect]
     Indication: CATHETERISATION CARDIAC
     Dosage: 126 ML ONE TIME INTRACORONA
     Route: 022
     Dates: start: 20060929, end: 20060929

REACTIONS (2)
  - GENERALISED ERYTHEMA [None]
  - HEADACHE [None]
